FAERS Safety Report 9312853 (Version 1)
Quarter: 2013Q2

REPORT INFORMATION
  Report Type: Spontaneous
  Country: US (occurrence: US)
  Receive Date: 20130528
  Receipt Date: 20130528
  Transmission Date: 20140414
  Serious: Yes (Life-Threatening, Hospitalization)
  Sender: FDA-Public Use
  Company Number: US-ASTRAZENECA-2013SE04752

PATIENT
  Age: 68 Year
  Sex: Male

DRUGS (18)
  1. SYMBICORT PMDI [Suspect]
     Indication: CHRONIC OBSTRUCTIVE PULMONARY DISEASE
     Dosage: 160/4.5 MCG, 2PUFFS TWO TIMEAS A DAY
     Route: 055
     Dates: start: 201202
  2. PREDNISONE [Concomitant]
     Route: 048
  3. PREDNISONE [Concomitant]
     Route: 048
  4. PREDNISONE [Concomitant]
     Route: 048
  5. PREDNISONE [Concomitant]
     Route: 048
  6. FUROSEMIDE [Concomitant]
     Indication: HYPERTENSION
  7. ALBUTEROL [Concomitant]
     Indication: WHEEZING
     Dosage: 2.5 MG /3 ML (0.083 %) EVERY 6 HOURS AS NEEDED
     Route: 055
  8. ALBUTEROL [Concomitant]
     Indication: DYSPNOEA
     Dosage: 2.5 MG /3 ML (0.083 %) EVERY 6 HOURS AS NEEDED
     Route: 055
  9. ALBUTEROL-IPRATROPIUM [Concomitant]
     Indication: WHEEZING
     Dosage: 18-103 MCG 2 PUFFS EVERY 6 HOURS AS NEEDED
  10. ALBUTEROL-IPRATROPIUM [Concomitant]
     Indication: DYSPNOEA
     Dosage: 18-103 MCG 2 PUFFS EVERY 6 HOURS AS NEEDED
  11. IPRATROPIUM [Concomitant]
     Indication: WHEEZING
     Dosage: 2.5 ML VIA NEBULIZER EVERY 6 HOURS AS NEEDED
     Route: 055
  12. IPRATROPIUM [Concomitant]
     Indication: DYSPNOEA
     Dosage: 2.5 ML VIA NEBULIZER EVERY 6 HOURS AS NEEDED
     Route: 055
  13. MULTIVITAMIN [Concomitant]
     Route: 048
  14. FOSAMPRENAVIR [Concomitant]
     Route: 048
  15. SULFAMETHOXAZOLE-TRIMETHOPRIM [Concomitant]
     Indication: HIV INFECTION
  16. EMTRICITABINE [Concomitant]
     Indication: HIV INFECTION
  17. RALTEGRAVIR [Concomitant]
     Indication: HIV INFECTION
     Route: 048
  18. ETRAVIRINE [Concomitant]
     Indication: HIV INFECTION
     Route: 048

REACTIONS (5)
  - Lower respiratory tract infection [Unknown]
  - Pneumonia [Unknown]
  - Chronic obstructive pulmonary disease [Recovering/Resolving]
  - HIV infection [Recovering/Resolving]
  - Diastolic dysfunction [Recovering/Resolving]
